FAERS Safety Report 6303944-9 (Version None)
Quarter: 2009Q3

REPORT INFORMATION
  Report Type: 
  Country: None (occurrence: None)
  Receive Date: 20090805
  Receipt Date: 20090724
  Transmission Date: 20100115
  Serious: Yes (Hospitalization, Other)
  Sender: FDA-Public Use
  Company Number: 220003E09ESP

PATIENT
  Age: 43 Year
  Sex: Female
  Weight: 70.3 kg

DRUGS (5)
  1. SAIZEN [Suspect]
     Indication: FIBROMYALGIA
     Dosage: 0.7 MG, 1 IN 1 DAYS, SUBCUTANEOUS ; 0.7 MG, 1 IN 1 DAYS, SUBCUTANEOUS
     Route: 058
     Dates: start: 20080221, end: 20090412
  2. SAIZEN [Suspect]
     Indication: FIBROMYALGIA
     Dosage: 0.7 MG, 1 IN 1 DAYS, SUBCUTANEOUS ; 0.7 MG, 1 IN 1 DAYS, SUBCUTANEOUS
     Route: 058
     Dates: start: 20090428
  3. AMITRIPTYLINE HCL [Concomitant]
  4. ULTRACET [Concomitant]
  5. ESCITALOPRAM [Concomitant]

REACTIONS (2)
  - NASAL SEPTAL OPERATION [None]
  - SLEEP APNOEA SYNDROME [None]
